FAERS Safety Report 17284183 (Version 2)
Quarter: 2020Q1

REPORT INFORMATION
  Report Type: Report from Study
  Country: FR (occurrence: FR)
  Receive Date: 20200117
  Receipt Date: 20200130
  Transmission Date: 20200409
  Serious: Yes (Hospitalization)
  Sender: FDA-Public Use
  Company Number: FR-RECORDATI RARE DISEASES-2079130

PATIENT
  Age: 20 Year
  Sex: Female
  Weight: 51.8 kg

DRUGS (5)
  1. CARBAGLU [Suspect]
     Active Substance: CARGLUMIC ACID
     Indication: PRODUCT USED FOR UNKNOWN INDICATION
     Dates: start: 20170202, end: 20191212
  2. XMTVI MAXAMAID [Concomitant]
  3. CLAMOXYL [AMOXICILLIN] [Concomitant]
     Active Substance: AMOXICILLIN
  4. BIOTINE [BIOTIN] [Concomitant]
     Active Substance: BIOTIN
  5. LEVOCARNIL [LEVOCARNITINE] [Concomitant]
     Active Substance: LEVOCARNITINE

REACTIONS (3)
  - Hyperammonaemia [Not Recovered/Not Resolved]
  - Drug ineffective [Recovered/Resolved]
  - Metabolic acidosis [Recovered/Resolved]

NARRATIVE: CASE EVENT DATE: 20191212
